FAERS Safety Report 5333515-2 (Version None)
Quarter: 2007Q2

REPORT INFORMATION
  Report Type: 
  Country: None (occurrence: None)
  Receive Date: 20070524
  Receipt Date: 20070523
  Transmission Date: 20071010
  Serious: Yes (Hospitalization)
  Sender: FDA-Public Use
  Company Number: US-BRISTOL-MYERS SQUIBB COMPANY-13789649

PATIENT
  Age: 77 Year
  Sex: Male
  Weight: 57 kg

DRUGS (11)
  1. TAXOL [Suspect]
     Indication: NON-SMALL CELL LUNG CANCER
     Route: 042
     Dates: start: 20070213, end: 20070213
  2. CARBOPLATIN [Suspect]
     Indication: NON-SMALL CELL LUNG CANCER
     Route: 042
     Dates: start: 20070213, end: 20070213
  3. PF-3512676 [Suspect]
     Indication: NON-SMALL CELL LUNG CANCER
     Route: 058
     Dates: start: 20070131, end: 20070131
  4. PROMETHAZINE [Concomitant]
     Route: 048
     Dates: start: 20070123
  5. VITAMIN CAP [Concomitant]
     Route: 048
     Dates: start: 20070123
  6. SENOKOT [Concomitant]
     Route: 048
     Dates: start: 20070123
  7. LORTAB [Concomitant]
     Route: 048
     Dates: start: 20070207, end: 20070307
  8. TYLENOL EXTRA STRENGTH [Concomitant]
     Route: 048
     Dates: start: 20070207
  9. MEGACE [Concomitant]
     Route: 048
     Dates: start: 20070213
  10. ALBUTEROL [Concomitant]
     Route: 048
     Dates: start: 20070221, end: 20070309
  11. LEVAQUIN [Concomitant]
     Route: 048
     Dates: start: 20070221, end: 20070225

REACTIONS (2)
  - ANOREXIA [None]
  - DYSPHAGIA [None]
